FAERS Safety Report 16891137 (Version 1)
Quarter: 2019Q4

REPORT INFORMATION
  Report Type: Spontaneous
  Country: ES (occurrence: ES)
  Receive Date: 20191007
  Receipt Date: 20191007
  Transmission Date: 20200122
  Serious: Yes (Congenital Anomaly)
  Sender: FDA-Public Use
  Company Number: ES-MYLANLABS-2019M1092065

PATIENT
  Sex: Male
  Weight: 3.36 kg

DRUGS (1)
  1. LAMOTRIGINE. [Suspect]
     Active Substance: LAMOTRIGINE
     Indication: PRODUCT USED FOR UNKNOWN INDICATION
     Dosage: UNK
     Route: 064
     Dates: start: 2018

REACTIONS (2)
  - Talipes [Not Recovered/Not Resolved]
  - Foetal exposure during delivery [Recovered/Resolved]

NARRATIVE: CASE EVENT DATE: 201808
